FAERS Safety Report 8615925-0 (Version None)
Quarter: 2012Q3

REPORT INFORMATION
  Report Type: 
  Country: None (occurrence: None)
  Receive Date: 20120823
  Receipt Date: 20120823
  Transmission Date: 20120928
  Serious: Yes (Other)
  Sender: FDA-Public Use
  Company Number: US-GLAXOSMITHKLINE-A0990444A

PATIENT
  Sex: Male

DRUGS (2)
  1. SORIATANE [Suspect]
     Indication: PRODUCT USED FOR UNKNOWN INDICATION
     Dosage: 25MG TWICE PER DAY
     Route: 048
     Dates: start: 20120601, end: 20120820
  2. METHOTREXATE [Concomitant]

REACTIONS (4)
  - TRAUMATIC HAEMATOMA [None]
  - SWELLING [None]
  - NASAL DRYNESS [None]
  - HAEMATOMA [None]
